FAERS Safety Report 4491444-0 (Version None)
Quarter: 2004Q4

REPORT INFORMATION
  Report Type: 
  Country: None (occurrence: None)
  Receive Date: 20041103
  Receipt Date: 20041103
  Transmission Date: 20050328
  Serious: No
  Sender: FDA-Public Use
  Company Number: None

PATIENT
  Age: 64 Year
  Sex: Female

DRUGS (2)
  1. ADALAT CC [Suspect]
     Dosage: TABLET , EXTENDED RELEASE
  2. ADALAT CC [Suspect]
     Dosage: TABLET , EXTENDED RELEASE

REACTIONS (1)
  - MEDICATION ERROR [None]
